FAERS Safety Report 6343166-9 (Version None)
Quarter: 2009Q3

REPORT INFORMATION
  Report Type: 
  Country: None (occurrence: None)
  Receive Date: 20090908
  Receipt Date: 20090902
  Transmission Date: 20100115
  Serious: Yes (Hospitalization)
  Sender: FDA-Public Use
  Company Number: IT-BAYER-200924757GPV

PATIENT
  Age: 94 Year
  Sex: Male

DRUGS (1)
  1. ASPIRIN [Suspect]
     Indication: MYOCARDIAL ISCHAEMIA
     Dosage: TOTAL DAILY DOSE: 100 MG  UNIT DOSE: 100 MG
     Route: 048
     Dates: start: 20080101, end: 20090308

REACTIONS (4)
  - ANAEMIA [None]
  - HAEMATEMESIS [None]
  - HYPOTENSION [None]
  - MELAENA [None]
